FAERS Safety Report 6181992-X (Version None)
Quarter: 2009Q2

REPORT INFORMATION
  Report Type: 
  Country: None (occurrence: None)
  Receive Date: 20090505
  Receipt Date: 20090429
  Transmission Date: 20091009
  Serious: Yes (Death, Hospitalization)
  Sender: FDA-Public Use
  Company Number: 2009004633

PATIENT
  Age: 88 Year
  Sex: Female
  Weight: 48.5349 kg

DRUGS (10)
  1. TREANDA [Suspect]
     Indication: CHRONIC LYMPHOCYTIC LEUKAEMIA
     Dosage: 75MG/M2; (110 MG); 2 DOSES
     Dates: start: 20090407, end: 20090408
  2. ALLOPURINOL [Concomitant]
  3. LEVOXYL [Concomitant]
  4. SINGULAIR [Concomitant]
  5. VITAMIN B12 [Concomitant]
  6. ALDARA [Concomitant]
  7. ZOFRAN [Concomitant]
  8. DECADRON [Concomitant]
  9. BENADRYL [Concomitant]
  10. ACYCLOVIR [Concomitant]

REACTIONS (7)
  - CARDIOPULMONARY FAILURE [None]
  - CIRCULATORY COLLAPSE [None]
  - DEHYDRATION [None]
  - DRUG HYPERSENSITIVITY [None]
  - FLUID INTAKE REDUCED [None]
  - HYPOPHAGIA [None]
  - MUCOSAL INFLAMMATION [None]
